FAERS Safety Report 6325982-2 (Version None)
Quarter: 2009Q3

REPORT INFORMATION
  Report Type: 
  Country: None (occurrence: None)
  Receive Date: 20090824
  Receipt Date: 20090819
  Transmission Date: 20100115
  Serious: Yes (Death)
  Sender: FDA-Public Use
  Company Number: IN-ELI_LILLY_AND_COMPANY-IN200908003953

PATIENT
  Age: 49 Year
  Sex: Female

DRUGS (2)
  1. GEMCITE [Suspect]
     Indication: LUNG NEOPLASM MALIGNANT
     Dosage: 1400 MG/M2, UNKNOWN
     Route: 042
     Dates: start: 20090101
  2. CARBOPLATIN [Concomitant]
     Indication: LUNG NEOPLASM MALIGNANT
     Dosage: UNK, UNKNOWN
     Route: 065

REACTIONS (1)
  - DEATH [None]
